FAERS Safety Report 8460650 (Version 9)
Quarter: 2019Q3

REPORT INFORMATION
  Report Type: Report from Study
  Country: AR (occurrence: AR)
  Receive Date: 20120315
  Receipt Date: 20190714
  Transmission Date: 20191005
  Serious: Yes (Hospitalization)
  Sender: FDA-Public Use
  Company Number: AR-UCBSA-052967

PATIENT
  Age: 52 Year
  Sex: Male
  Weight: 98.5 kg

DRUGS (7)
  1. CERTOLIZUMAB PEGOL VS PLACEBO [Suspect]
     Active Substance: CERTOLIZUMAB PEGOL
     Indication: ANKYLOSING SPONDYLITIS
     Dosage: 200 MG, EV 2 WEEKS(QOW); NO. OF DOSES RECEIVED: 21 INJECTIONS
     Route: 058
     Dates: start: 20110317, end: 20120214
  2. SULFASALAZINE. [Concomitant]
     Active Substance: SULFASALAZINE
     Indication: ANKYLOSING SPONDYLITIS
     Dosage: 200 MG, ONCE DAILY (QD)
     Dates: start: 201008
  3. RANITIDINE. [Concomitant]
     Active Substance: RANITIDINE
     Dosage: 150 MG, 2X/DAY (BID)
     Dates: start: 201203, end: 201203
  4. RANITIDINE. [Concomitant]
     Active Substance: RANITIDINE
     Indication: PROPHYLAXIS
     Dosage: 1 AMPULLE
     Route: 042
     Dates: start: 20120307, end: 201203
  5. METOCLOPRAMIDE. [Concomitant]
     Active Substance: METOCLOPRAMIDE
     Indication: PROPHYLAXIS
     Dosage: 1 AMPULLE
     Route: 042
     Dates: start: 20120307, end: 201203
  6. CLONAZEPAM. [Concomitant]
     Active Substance: CLONAZEPAM
     Indication: ANXIETY
     Dosage: 1 MG
     Dates: start: 20120307, end: 201203
  7. DICLOFENAC [Concomitant]
     Active Substance: DICLOFENAC
     Indication: ANKYLOSING SPONDYLITIS
     Dosage: 150 MG, ONCE DAILY (QD)
     Dates: start: 201008

REACTIONS (1)
  - Pulmonary tuberculosis [Recovered/Resolved]

NARRATIVE: CASE EVENT DATE: 20120214
